FAERS Safety Report 8054653-X (Version None)
Quarter: 2012Q1

REPORT INFORMATION
  Report Type: 
  Country: None (occurrence: None)
  Receive Date: 20120119
  Receipt Date: 20120112
  Transmission Date: 20120608
  Serious: No
  Sender: FDA-Public Use
  Company Number: US-PFIZER INC-2012002724

PATIENT
  Sex: Female
  Weight: 68.027 kg

DRUGS (4)
  1. CELEXA [Concomitant]
     Dosage: 40 MG, 1X/DAY
  2. SEROQUEL [Concomitant]
     Dosage: UNK
  3. LYRICA [Suspect]
     Indication: PAIN
     Dosage: 200 MG, 3X/DAY
     Route: 048
     Dates: start: 20050101
  4. KLONOPIN [Concomitant]
     Dosage: 1 MG, AS NEEDED

REACTIONS (1)
  - DRUG INEFFECTIVE [None]
